FAERS Safety Report 14667377 (Version 1)
Quarter: 2018Q1

REPORT INFORMATION
  Report Type: Spontaneous
  Country: FR (occurrence: FR)
  Receive Date: 20180322
  Receipt Date: 20180322
  Transmission Date: 20180509
  Serious: Yes (Other)
  Sender: FDA-Public Use
  Company Number: FR-MERCK KGAA-2044289

PATIENT
  Age: 44 Year
  Sex: Female

DRUGS (4)
  1. NOVOTHYROX [Suspect]
     Active Substance: LEVOTHYROXINE SODIUM
     Indication: AUTOIMMUNE THYROIDITIS
  2. NOVOTHYROX [Suspect]
     Active Substance: LEVOTHYROXINE SODIUM
     Dates: start: 20170902
  3. NOVOTHYROX [Suspect]
     Active Substance: LEVOTHYROXINE SODIUM
     Dates: start: 20170412
  4. NOVOTHYROX [Suspect]
     Active Substance: LEVOTHYROXINE SODIUM
     Dates: start: 20170620

REACTIONS (32)
  - Weight increased [Recovered/Resolved]
  - Disturbance in attention [Recovered/Resolved]
  - Anxiety [Recovered/Resolved]
  - Arthralgia [Recovered/Resolved]
  - Hot flush [Recovered/Resolved]
  - Suicidal ideation [Recovered/Resolved]
  - Sleep disorder [Recovered/Resolved]
  - Decreased interest [Recovered/Resolved]
  - Libido decreased [Recovered/Resolved]
  - Headache [Recovered/Resolved]
  - Body temperature increased [Recovered/Resolved]
  - Muscle spasms [Recovered/Resolved]
  - Hypothyroidism [None]
  - Feeling cold [Recovered/Resolved]
  - Somnolence [Recovered/Resolved]
  - Blood thyroid stimulating hormone increased [Recovered/Resolved]
  - Amenorrhoea [Recovered/Resolved]
  - Middle insomnia [Recovered/Resolved]
  - Irritability [Recovered/Resolved]
  - Asthenia [Not Recovered/Not Resolved]
  - Affective disorder [Recovering/Resolving]
  - Dry skin [Recovered/Resolved]
  - Crying [Recovered/Resolved]
  - Alopecia [Recovered/Resolved]
  - Hyperthyroidism [Recovered/Resolved]
  - Dyspnoea [Recovered/Resolved]
  - Depression [Not Recovered/Not Resolved]
  - Dizziness [Recovered/Resolved]
  - Onychoclasis [Recovered/Resolved]
  - Myalgia [Recovered/Resolved]
  - Psychiatric symptom [Recovered/Resolved]
  - Impaired driving ability [Recovered/Resolved]

NARRATIVE: CASE EVENT DATE: 20170412
